FAERS Safety Report 7365081-4 (Version None)
Quarter: 2011Q1

REPORT INFORMATION
  Report Type: 
  Country: None (occurrence: None)
  Receive Date: 20110321
  Receipt Date: 20110303
  Transmission Date: 20110831
  Serious: Yes (Other)
  Sender: FDA-Public Use
  Company Number: IE-ASTRAZENECA-2010SE44844

PATIENT
  Age: 29 Year
  Sex: Female

DRUGS (6)
  1. LITHIUM CARBONATE [Concomitant]
  2. SEROQUEL [Suspect]
     Route: 048
  3. SEROQUEL [Suspect]
     Route: 048
  4. SEROQUEL [Suspect]
     Indication: BIPOLAR DISORDER
     Route: 048
  5. NA VALPROATE [Concomitant]
  6. SEROQUEL [Suspect]
     Route: 048

REACTIONS (1)
  - BREAST CANCER [None]
